FAERS Safety Report 8712037 (Version 3)
Quarter: 2013Q1

REPORT INFORMATION
  Report Type: Report from Study
  Country: US (occurrence: US)
  Receive Date: 20120807
  Receipt Date: 20130220
  Transmission Date: 20140127
  Serious: Yes (Hospitalization)
  Sender: FDA-Public Use
  Company Number: US-ABBOTT-12P-163-0962802-00

PATIENT
  Sex: Female
  Weight: 104.42 kg

DRUGS (5)
  1. HUMIRA [Suspect]
     Dates: start: 20120531
  2. COLESTIPOL [Concomitant]
     Indication: GASTRIC PH DECREASED
  3. UNKNOWN NAUSEA MEDICATION [Concomitant]
     Indication: PRODUCT USED FOR UNKNOWN INDICATION
  4. APRAZOLAM [Concomitant]
     Indication: ANXIETY
  5. AMBIEN [Concomitant]
     Indication: PRODUCT USED FOR UNKNOWN INDICATION

REACTIONS (8)
  - Fistula [Recovering/Resolving]
  - Crohn^s disease [Recovering/Resolving]
  - Dehydration [Recovering/Resolving]
  - Diarrhoea haemorrhagic [Recovering/Resolving]
  - Micturition urgency [Recovered/Resolved]
  - Anorectal infection [Recovering/Resolving]
  - Blood iron decreased [Recovered/Resolved]
  - Proctalgia [Not Recovered/Not Resolved]
